FAERS Safety Report 9131226 (Version 1)
Quarter: 2013Q1

REPORT INFORMATION
  Report Type: Spontaneous
  Country: DE (occurrence: DE)
  Receive Date: 20130301
  Receipt Date: 20130301
  Transmission Date: 20140127
  Serious: Yes (Other)
  Sender: FDA-Public Use
  Company Number: DE-SANOFI-AVENTIS-2013SA019283

PATIENT
  Sex: Male

DRUGS (2)
  1. LANTUS [Suspect]
     Indication: SUICIDE ATTEMPT
     Route: 051
     Dates: start: 201302, end: 201302
  2. ACTRAPHANE [Suspect]
     Indication: SUICIDE ATTEMPT
     Dates: start: 201302, end: 201302

REACTIONS (3)
  - Suicide attempt [Unknown]
  - Intentional overdose [Unknown]
  - Blood glucose decreased [Unknown]
